FAERS Safety Report 10649069 (Version 1)
Quarter: 2014Q4

REPORT INFORMATION
  Report Type: Spontaneous
  Country: US (occurrence: None)
  Receive Date: 20141205
  Receipt Date: 20141205
  Transmission Date: 20150529
  Serious: No
  Sender: FDA-Public Use
  Company Number: USA-2014101958

PATIENT
  Age: 68 Year
  Sex: Male

DRUGS (9)
  1. NEPHROVITE(ASCORBIC ACID, PYRIDOXINE HYDROCHLORIDE, BIOTIN, FOLIC ACID, THIAMINE HYDROCHLORIDE, CYANOCOBALAMIN, RIBOFLAVIN, NICOTINAMIDE, CALCIUM PANTOTHENATE) (UNKNOWN) [Concomitant]
  2. PROAMATINE(MIDODRINE HYDROCHLORIDE) (UNKNOWN) [Concomitant]
  3. WARFARIN SODIUM(WARFARIN SODIUM) (UNKNOWN) [Concomitant]
  4. PREDNISONE(PREDNISONE) (UNKNOWN) [Concomitant]
  5. PRAVASTATIN SODIUM(PRAVASTATIN SODIUM) (UNKNOWN) [Concomitant]
  6. DIGOXIN(DIGOXIN) (UNKNOWN) [Concomitant]
  7. CALCIUM ACETATE. [Concomitant]
     Active Substance: CALCIUM ACETATE
  8. POMALYST [Suspect]
     Active Substance: POMALIDOMIDE
     Indication: PLASMA CELL MYELOMA
     Dosage: 21 IN 21 D
     Route: 048
     Dates: start: 20140908
  9. LYRICA(PREGABALIN) (UNKNOWN) [Concomitant]

REACTIONS (1)
  - Herpes zoster [None]

NARRATIVE: CASE EVENT DATE: 20140925
